FAERS Safety Report 5317367-2 (Version None)
Quarter: 2007Q2

REPORT INFORMATION
  Report Type: 
  Country: None (occurrence: None)
  Receive Date: 20070504
  Receipt Date: 20070427
  Transmission Date: 20071010
  Serious: Yes (Hospitalization, Other)
  Sender: FDA-Public Use
  Company Number: US-MERCK-0607USA02622

PATIENT
  Age: 49 Year
  Sex: Female

DRUGS (3)
  1. FOSAMAX [Suspect]
     Indication: OSTEOPOROSIS
     Route: 048
     Dates: start: 20040401, end: 20060201
  2. FOSAMAX [Suspect]
     Indication: OSTEOPENIA
     Route: 048
     Dates: start: 20040401, end: 20060201
  3. HORMONES (UNSPECIFIED) [Concomitant]
     Route: 065
     Dates: end: 20050101

REACTIONS (5)
  - ANXIETY [None]
  - DEPRESSION [None]
  - HERPES SIMPLEX [None]
  - OSTEOARTHRITIS [None]
  - OSTEONECROSIS [None]
